FAERS Safety Report 10424370 (Version 1)
Quarter: 2014Q3

REPORT INFORMATION
  Report Type: Spontaneous
  Country: US (occurrence: US)
  Receive Date: 20140902
  Receipt Date: 20140902
  Transmission Date: 20150326
  Serious: Yes (Hospitalization, Other)
  Sender: FDA-Public Use
  Company Number: US-BRISTOL-MYERS SQUIBB COMPANY-21328489

PATIENT
  Age: 64 Year
  Sex: Female
  Weight: 45.35 kg

DRUGS (1)
  1. BYETTA [Suspect]
     Active Substance: EXENATIDE
     Dosage: DURATION OF THERAPY: 3-4 YEARS

REACTIONS (4)
  - Nausea [Unknown]
  - Patella fracture [Unknown]
  - Weight decreased [Unknown]
  - Fall [Unknown]
